FAERS Safety Report 6039112-8 (Version None)
Quarter: 2009Q1

REPORT INFORMATION
  Report Type: 
  Country: None (occurrence: None)
  Receive Date: 20090115
  Receipt Date: 20090105
  Transmission Date: 20090719
  Serious: Yes (Hospitalization)
  Sender: FDA-Public Use
  Company Number: FR-PFIZER INC-2009152342

PATIENT

DRUGS (13)
  1. LYRICA [Suspect]
     Indication: NEURALGIA
     Dosage: UNK
     Route: 048
     Dates: start: 20080827, end: 20080906
  2. ZOCOR [Suspect]
     Dosage: 20 MG, UNK
     Route: 048
     Dates: start: 20030101, end: 20080909
  3. TAREG [Concomitant]
  4. AMLOR [Concomitant]
  5. KARDEGIC [Concomitant]
  6. FLUDEX [Concomitant]
  7. PLAVIX [Concomitant]
  8. MODOPAR [Concomitant]
  9. XATRAL [Concomitant]
  10. INSULATARD [Concomitant]
  11. NOVONORM [Concomitant]
  12. STAGID [Concomitant]
  13. ACARBOSE [Concomitant]

REACTIONS (3)
  - BLOOD CREATINE PHOSPHOKINASE INCREASED [None]
  - MYALGIA [None]
  - MYOGLOBIN BLOOD INCREASED [None]
